FAERS Safety Report 8088835-8 (Version None)
Quarter: 2012Q1

REPORT INFORMATION
  Report Type: 
  Country: None (occurrence: None)
  Receive Date: 20120128
  Receipt Date: 20110411
  Transmission Date: 20120608
  Serious: No
  Sender: FDA-Public Use
  Company Number: US-ABBOTT-11P-163-0717122-00

PATIENT
  Sex: Female
  Weight: 59.02 kg

DRUGS (8)
  1. HUMIRA [Suspect]
     Indication: AUTOIMMUNE DISORDER
     Dates: start: 20050101
  2. ONDANSETRON HCL [Concomitant]
     Indication: NAUSEA
  3. ACTIQ [Concomitant]
     Indication: PRODUCT USED FOR UNKNOWN INDICATION
  4. DONNATAL [Concomitant]
     Indication: GASTRIC DISORDER
  5. VARIOUS TOPICAL CREAMS [Concomitant]
     Indication: PRODUCT USED FOR UNKNOWN INDICATION
  6. LORAZEPAM [Concomitant]
     Indication: NAUSEA
  7. LORAZEPAM [Concomitant]
     Indication: PSORIASIS
  8. LIDOCAINE [Concomitant]
     Indication: PAIN IN EXTREMITY
     Dosage: PATCHES

REACTIONS (7)
  - INCORRECT DOSE ADMINISTERED [None]
  - BRONCHITIS [None]
  - PHARYNGITIS STREPTOCOCCAL [None]
  - PRODUCT PACKAGING ISSUE [None]
  - EAR INFECTION [None]
  - ARTHRALGIA [None]
  - DRUG INEFFECTIVE [None]
